FAERS Safety Report 10787569 (Version 1)
Quarter: 2015Q1

REPORT INFORMATION
  Report Type: Spontaneous
  Country: US (occurrence: US)
  Receive Date: 20150212
  Receipt Date: 20150212
  Transmission Date: 20150721
  Serious: Yes (Other)
  Sender: FDA-Public Use
  Company Number: US-PAR PHARMACEUTICAL, INC-2015SCPR010361

PATIENT

DRUGS (5)
  1. CLARINEX                           /01202601/ [Concomitant]
     Indication: HYPERSENSITIVITY
     Dosage: 1 DF, OD
     Route: 048
  2. AUGMENTIN [Concomitant]
     Active Substance: AMOXICILLIN\CLAVULANATE POTASSIUM
     Indication: URINARY TRACT INFECTION
     Dosage: 1 DF, BID
     Route: 048
  3. CHOLESTYRAMINE. [Suspect]
     Active Substance: CHOLESTYRAMINE
     Indication: MALABSORPTION
     Dosage: 1 SACHET, BID
     Route: 048
     Dates: start: 20150201, end: 20150203
  4. NUTROPIN [Concomitant]
     Active Substance: SOMATROPIN
     Indication: BLOOD GROWTH HORMONE ABNORMAL
     Dosage: UNK, UNKNOWN
     Route: 030
  5. SINGULAIR [Concomitant]
     Active Substance: MONTELUKAST SODIUM
     Indication: ASTHMA
     Dosage: 1 DF, OD
     Route: 048

REACTIONS (5)
  - Joint swelling [Recovered/Resolved]
  - Product use issue [Unknown]
  - Abdominal distension [Recovered/Resolved]
  - Blood glucose increased [Recovered/Resolved]
  - Peripheral swelling [Recovered/Resolved]

NARRATIVE: CASE EVENT DATE: 20150201
